FAERS Safety Report 8465732 (Version 4)
Quarter: 2012Q4

REPORT INFORMATION
  Report Type: Report from Study
  Country: BR (occurrence: BR)
  Receive Date: 20120319
  Receipt Date: 20121109
  Transmission Date: 20130627
  Serious: Yes (Hospitalization)
  Sender: FDA-Public Use
  Company Number: BR-ABBOTT-12P-020-0913794-00

PATIENT
  Age: 22 Year
  Sex: Female
  Weight: 72 kg

DRUGS (5)
  1. KALETRA TABLETS [Suspect]
     Indication: HIV INFECTION
     Dosage: 100/33mg
     Route: 048
     Dates: start: 20120302
  2. ZIDOVUDINE W/LAMIVUDINE [Concomitant]
     Indication: HIV INFECTION
     Dosage: 150/300 mg
     Route: 048
     Dates: start: 20080301
  3. ATAZANAVIR SULFATE [Concomitant]
     Indication: HIV INFECTION
     Route: 048
     Dates: start: 20110915, end: 20120202
  4. PARACETAMOL [Concomitant]
     Indication: HEADACHE
     Route: 048
  5. DIPIRONE [Concomitant]
     Indication: HEADACHE
     Route: 048

REACTIONS (1)
  - Abortion spontaneous [Unknown]
